FAERS Safety Report 10027710 (Version 1)
Quarter: 2014Q1

REPORT INFORMATION
  Report Type: Spontaneous
  Country: IT (occurrence: None)
  Receive Date: 20140319
  Receipt Date: 20140319
  Transmission Date: 20141002
  Serious: Yes (Death)
  Sender: FDA-Public Use
  Company Number: 1663512

PATIENT
  Age: 82 Year
  Sex: Male
  Weight: 75 kg

DRUGS (1)
  1. DEXMEDETOMIDINE HYDROCHLORIDE [Suspect]
     Indication: SEDATION
     Dosage: 0.45 MCG/KG/H, TOTAL DAILY DOSE 800 MCG (UNKNOWN) INTRAVENOUS (NOT OTHERWISE SPECIFIED)
     Route: 042
     Dates: start: 20120621, end: 20120628

REACTIONS (5)
  - Cardiac arrest [None]
  - Hypotension [None]
  - Atrial fibrillation [None]
  - Pulmonary oedema [None]
  - Oxygen saturation decreased [None]
